FAERS Safety Report 5616705-0 (Version None)
Quarter: 2008Q1

REPORT INFORMATION
  Report Type: 
  Country: None (occurrence: None)
  Receive Date: 20080207
  Receipt Date: 20080129
  Transmission Date: 20080703
  Serious: Yes (Hospitalization)
  Sender: FDA-Public Use
  Company Number: PHBS2008PT01492

PATIENT
  Age: 61 Year
  Sex: Female

DRUGS (13)
  1. TIOTROPIUM BROMIDE [Concomitant]
     Indication: CHRONIC OBSTRUCTIVE PULMONARY DISEASE
     Dosage: 1 CAPSLE/DAY
  2. SALMETEROL [Concomitant]
     Indication: CHRONIC OBSTRUCTIVE PULMONARY DISEASE
     Dosage: 50 UG, BID
  3. FLUTICASONE PROPIONATE [Concomitant]
     Indication: CHRONIC OBSTRUCTIVE PULMONARY DISEASE
     Dosage: 500 UG, BID
  4. SPIRONOLACTONE [Concomitant]
     Indication: CARDIAC FAILURE
     Dosage: 1 TABLET/DAY
     Route: 048
  5. AMINOPHYLLINE [Concomitant]
     Indication: CHRONIC OBSTRUCTIVE PULMONARY DISEASE
     Dosage: 450 MG/DAY
     Route: 048
  6. SULFASALAZINE [Concomitant]
     Indication: RHEUMATOID ARTHRITIS
     Dosage: 4 TABLETS/DAY
     Route: 048
  7. ISONIAZID [Concomitant]
     Indication: ANTIBIOTIC PROPHYLAXIS
     Dosage: 300 MG/DAY
     Route: 048
  8. PREDNISOLONE [Concomitant]
     Indication: RHEUMATOID ARTHRITIS
     Dosage: 5 MG/DAY
     Route: 048
  9. ALENDRONATO SODICO [Concomitant]
     Dosage: 70 MG, QW
     Route: 048
  10. CALCIUM GLUCONATE [Concomitant]
     Dosage: 1000 MG/DAY
     Route: 048
  11. TOBI [Suspect]
     Indication: BRONCHIECTASIS
     Dosage: 600 MG/DAY
     Dates: start: 20070428, end: 20070526
  12. TOBI [Suspect]
     Dosage: 600 MG/DAY
     Dates: start: 20070624
  13. TOBI [Suspect]
     Dosage: 600 MG/DAY
     Dates: start: 20071101

REACTIONS (9)
  - CONDITION AGGRAVATED [None]
  - COUGH [None]
  - CYANOSIS [None]
  - DYSPNOEA [None]
  - FATIGUE [None]
  - POLYMERASE CHAIN REACTION [None]
  - PRODUCTIVE COUGH [None]
  - RESPIRATORY FAILURE [None]
  - TACHYPNOEA [None]
